FAERS Safety Report 5412300-7 (Version None)
Quarter: 2007Q3

REPORT INFORMATION
  Report Type: 
  Country: None (occurrence: None)
  Receive Date: 20070813
  Receipt Date: 20070803
  Transmission Date: 20080115
  Serious: Yes (Hospitalization)
  Sender: FDA-Public Use
  Company Number: SE-BAXTER-2007BH003796

PATIENT
  Age: 57 Year
  Sex: Female
  Weight: 68 kg

DRUGS (36)
  1. EXTRANEAL [Suspect]
     Indication: RENAL FAILURE CHRONIC
     Route: 033
  2. EXTRANEAL [Suspect]
     Indication: WEGENER'S GRANULOMATOSIS
     Route: 033
  3. EXTRANEAL [Suspect]
     Route: 033
  4. EXTRANEAL [Suspect]
     Route: 033
  5. EXTRANEAL [Suspect]
     Route: 033
  6. EXTRANEAL [Suspect]
     Route: 033
  7. PHYSIOSOL IN PLASTIC CONTAINER [Suspect]
     Indication: RENAL FAILURE CHRONIC
     Route: 033
  8. PHYSIOSOL IN PLASTIC CONTAINER [Suspect]
     Indication: WEGENER'S GRANULOMATOSIS
     Route: 033
  9. NUTRINEAL [Suspect]
     Indication: RENAL FAILURE CHRONIC
     Route: 033
  10. NUTRINEAL [Suspect]
     Indication: WEGENER'S GRANULOMATOSIS
     Route: 033
  11. OMEPRAZOLE [Concomitant]
     Indication: GASTRIC DISORDER
     Dates: start: 20051205
  12. ETALPHA [Concomitant]
     Indication: VITAMIN D
     Dates: start: 20060105
  13. BEVITOTAL [Concomitant]
     Indication: HYPOVITAMINOSIS
     Dates: start: 20061129
  14. KALCIDON [Concomitant]
     Indication: ELECTROLYTE IMBALANCE
     Dates: start: 20060131
  15. KALIUM RETARD [Concomitant]
     Dates: start: 20061220
  16. TROMBYL [Concomitant]
     Indication: ANTICOAGULANT THERAPY
     Dates: start: 20060105
  17. BEHEPAN [Concomitant]
     Indication: HYPOVITAMINOSIS
     Dates: start: 20060131
  18. FOLACIN [Concomitant]
     Dates: start: 20060131
  19. EPOETIN BETA [Concomitant]
     Dates: start: 20060105
  20. ZAROXOLYN [Concomitant]
     Dates: start: 20060505
  21. FURIX [Concomitant]
     Indication: DIURETIC THERAPY
     Dates: start: 20051111
  22. INDERAL [Concomitant]
     Indication: CARDIAC DISORDER
     Dates: start: 20060414
  23. METOPROLOL SUCCINATE [Concomitant]
     Indication: BLOOD PRESSURE
     Dates: start: 20070423
  24. SIMVASTATIN [Concomitant]
     Indication: HYPERCHOLESTEROLAEMIA
     Dates: start: 20060105
  25. KLORHEXIDINSPRIT [Concomitant]
     Dates: start: 20070307
  26. PREDNISOLONE [Concomitant]
     Indication: ANTIINFLAMMATORY THERAPY
     Dates: start: 20051125
  27. AZATHIOPRINE SODIUM [Concomitant]
     Indication: ANTIINFLAMMATORY THERAPY
     Dates: start: 20060316
  28. FOSAMAX [Concomitant]
     Dates: start: 20051220
  29. GABAPENTIN [Concomitant]
     Indication: TREMOR
     Dosage: DOSE UNIT:UNKNOWN
     Dates: start: 20070410
  30. AKINETON [Concomitant]
     Indication: TREMOR
     Dosage: DOSE UNIT:UNKNOWN
     Dates: start: 20070410
  31. SIFROL [Concomitant]
     Indication: TREMOR
     Dosage: DOSE UNIT:UNKNOWN
     Dates: start: 20070410
  32. NITROMEX [Concomitant]
     Indication: CHEST PAIN
     Dosage: DOSE UNIT:UNKNOWN
     Dates: start: 20051206
  33. KETOGAN [Concomitant]
     Dates: start: 20070418
  34. ALVEDON [Concomitant]
     Indication: PAIN
     Dates: start: 20051107
  35. MADOPARK [Concomitant]
     Indication: MUSCLE SPASMS
     Dates: start: 20060601
  36. ZOPIKLON NM PHARMA [Concomitant]
     Indication: SLEEP DISORDER
     Dates: start: 20060105

REACTIONS (3)
  - NAUSEA [None]
  - PERITONITIS [None]
  - PYREXIA [None]
